FAERS Safety Report 25204817 (Version 1)
Quarter: 2025Q2

REPORT INFORMATION
  Report Type: Spontaneous
  Country: US (occurrence: US)
  Receive Date: 20250416
  Receipt Date: 20250416
  Transmission Date: 20250716
  Serious: Yes (Other)
  Sender: CATALYST PHARMA
  Company Number: US-CATALYST PHARMACEUTICALS, INC-US-CATA-23-00380

PATIENT
  Age: 58 Year
  Sex: Female
  Weight: 40.816 kg

DRUGS (15)
  1. FIRDAPSE [Suspect]
     Active Substance: AMIFAMPRIDINE PHOSPHATE
     Indication: Myasthenic syndrome
     Dosage: ONE TABLET THREE TIMES A DAY
     Route: 048
     Dates: start: 20230621, end: 202306
  2. FIRDAPSE [Suspect]
     Active Substance: AMIFAMPRIDINE PHOSPHATE
     Dosage: 10 MILLIGRAM, BID
     Route: 048
     Dates: start: 202306
  3. FIRDAPSE [Suspect]
     Active Substance: AMIFAMPRIDINE PHOSPHATE
     Dosage: ONE HALF TABLET BY MOUTH THREE TIMES A DAY
     Route: 048
     Dates: start: 20241107
  4. CYPROHEPTADINE [Concomitant]
     Active Substance: CYPROHEPTADINE
     Indication: Product used for unknown indication
     Route: 065
  5. ALBUTEROL [Concomitant]
     Active Substance: ALBUTEROL
     Indication: Product used for unknown indication
     Route: 065
  6. ATORVASTATIN [Concomitant]
     Active Substance: ATORVASTATIN
     Indication: Blood cholesterol increased
     Dosage: 10 MG ONE DAILY
     Route: 065
  7. MAGNESIUM [Concomitant]
     Active Substance: MAGNESIUM
     Indication: Product used for unknown indication
     Dosage: 400 MILLIGRAM, QD
     Route: 065
  8. WOMAN^S MULTIVITAMIN [Concomitant]
     Indication: Hypovitaminosis
     Dosage: ONE DAILY
     Route: 065
  9. PANTOPRAZOLE DELAYED RELEASE [Concomitant]
     Indication: Gastrooesophageal reflux disease
     Dosage: ONE TABLET TWICE A DAY
     Route: 065
  10. IRON [Concomitant]
     Active Substance: IRON
     Indication: Iron deficiency
     Dosage: TABLET 325 MG ONE DAILY
     Route: 065
  11. LYRICA [Concomitant]
     Active Substance: PREGABALIN
     Indication: Neuropathy peripheral
     Route: 065
  12. NORCO [Concomitant]
     Active Substance: ACETAMINOPHEN\HYDROCODONE BITARTRATE
     Indication: Neuropathy peripheral
     Dosage: ONE TABLET THREE TIMES A DAY
     Route: 065
  13. VALIUM [Concomitant]
     Active Substance: DIAZEPAM
     Indication: Muscle spasms
     Dosage: 5 MG ONE DAILY AS NEEDED
     Route: 065
  14. VITAMIN D3 [Concomitant]
     Active Substance: CHOLECALCIFEROL
     Indication: Hypovitaminosis
     Dosage: 2000 UNITS ONE DAILY
     Route: 048
  15. COBALAMIN [Concomitant]
     Active Substance: COBALAMIN
     Indication: Hypovitaminosis
     Dosage: 3000 MCG ONE DAILY
     Route: 060

REACTIONS (18)
  - Gastric ulcer [Recovered/Resolved]
  - Fatigue [Unknown]
  - Stress [Unknown]
  - Decreased appetite [Unknown]
  - Weight decreased [Unknown]
  - Contusion [Unknown]
  - Anxiety [Unknown]
  - Feeling abnormal [Unknown]
  - Paraesthesia oral [Unknown]
  - Lethargy [Unknown]
  - Dizziness [Unknown]
  - Constipation [Unknown]
  - Headache [Unknown]
  - Muscular weakness [Not Recovered/Not Resolved]
  - Fall [Unknown]
  - Fall [Unknown]
  - Intentional product use issue [Unknown]
  - Treatment noncompliance [Unknown]

NARRATIVE: CASE EVENT DATE: 20230601
